FAERS Safety Report 11286419 (Version 1)
Quarter: 2015Q3

REPORT INFORMATION
  Report Type: Spontaneous
  Country: US (occurrence: US)
  Receive Date: 20150721
  Receipt Date: 20150721
  Transmission Date: 20151125
  Serious: No
  Sender: FDA-Public Use
  Company Number: US-UNITED THERAPEUTICS-UNT-2015-001826

PATIENT
  Sex: Male
  Weight: 102.4 kg

DRUGS (6)
  1. TYVASO [Suspect]
     Active Substance: TREPROSTINIL
     Dosage: 18-72 ?G,QID
     Dates: start: 20140220
  2. ASPIRIN                            /00002701/ [Concomitant]
     Active Substance: ASPIRIN
     Indication: PRODUCT USED FOR UNKNOWN INDICATION
  3. TYVASO [Suspect]
     Active Substance: TREPROSTINIL
     Indication: PULMONARY HYPERTENSION
     Dosage: 18-72 ?G,QID
     Dates: start: 20140221
  4. ADCIRCA [Suspect]
     Active Substance: TADALAFIL
     Indication: PRODUCT USED FOR UNKNOWN INDICATION
     Route: 065
  5. OPSUMIT [Suspect]
     Active Substance: MACITENTAN
     Indication: PRODUCT USED FOR UNKNOWN INDICATION
  6. COUMADIN [Concomitant]
     Active Substance: WARFARIN SODIUM
     Indication: PRODUCT USED FOR UNKNOWN INDICATION

REACTIONS (14)
  - Cough [Unknown]
  - Nasal congestion [Unknown]
  - Migraine [Unknown]
  - Fatigue [Recovering/Resolving]
  - Lethargy [Unknown]
  - Seasonal allergy [Unknown]
  - Pain in jaw [Unknown]
  - Dyspnoea [Recovering/Resolving]
  - Insomnia [Unknown]
  - Tongue disorder [Unknown]
  - Upper respiratory tract infection [Recovering/Resolving]
  - Respiratory tract irritation [Unknown]
  - Sinus headache [Unknown]
  - Feeling jittery [Unknown]
